FAERS Safety Report 6814242-9 (Version None)
Quarter: 2010Q3

REPORT INFORMATION
  Report Type: 
  Country: None (occurrence: None)
  Receive Date: 20100702
  Receipt Date: 20100624
  Transmission Date: 20110219
  Serious: Yes (Hospitalization)
  Sender: FDA-Public Use
  Company Number: JP-ABBOTT-10P-087-0653726-00

PATIENT
  Sex: Female
  Weight: 55.5 kg

DRUGS (10)
  1. HUMIRA [Suspect]
     Indication: RHEUMATOID ARTHRITIS
     Route: 058
     Dates: start: 20091201, end: 20100105
  2. HUMIRA [Suspect]
     Dates: start: 20100120, end: 20100324
  3. METHOTREXATE [Suspect]
     Indication: RHEUMATOID ARTHRITIS
     Route: 048
     Dates: start: 20091201
  4. PREDNISOLONE [Suspect]
     Indication: RHEUMATOID ARTHRITIS
     Route: 048
     Dates: start: 20091201
  5. ALFACALCIDOL [Concomitant]
     Indication: OSTEOPOROSIS PROPHYLAXIS
     Route: 048
     Dates: start: 20091201
  6. LANSOPRAZOLE [Concomitant]
     Indication: GASTRITIS PROPHYLAXIS
     Route: 048
     Dates: start: 20091201
  7. DICLOFENAC SODIUM [Concomitant]
     Indication: PRODUCT USED FOR UNKNOWN INDICATION
     Route: 054
     Dates: start: 20091201
  8. ALENDRONATE SODIUM [Concomitant]
     Indication: OSTEOPOROSIS
     Route: 048
     Dates: start: 20091201
  9. AMLODIPINE BESILATE [Concomitant]
     Indication: HYPERTENSION
     Route: 048
     Dates: start: 20091201
  10. ALPRAZOLAM [Concomitant]
     Indication: INSOMNIA
     Route: 048

REACTIONS (4)
  - BACK PAIN [None]
  - BRONCHITIS [None]
  - COMPRESSION FRACTURE [None]
  - COUGH [None]
